FAERS Safety Report 5628452-X (Version None)
Quarter: 2008Q1

REPORT INFORMATION
  Report Type: 
  Country: None (occurrence: None)
  Receive Date: 20080131
  Receipt Date: 20071031
  Transmission Date: 20080703
  Serious: No
  Sender: FDA-Public Use
  Company Number: 163-21880-07110030

PATIENT
  Age: 56 Year
  Sex: Female

DRUGS (12)
  1. REVLIMID [Suspect]
     Indication: MULTIPLE MYELOMA
     Dosage: 25 MG, 1 IN 1 D, ORAL
     Route: 048
     Dates: start: 20070905
  2. PRAVACHOL [Concomitant]
  3. NORVASC [Concomitant]
  4. EFFEXOR [Concomitant]
  5. HYDROCHLOROTHIAZIDE [Concomitant]
  6. XOPENEX [Concomitant]
  7. ZYRTEC [Concomitant]
  8. LORAZEPAM [Concomitant]
  9. REGLAN [Concomitant]
  10. GLUCOSAMINE (GLUCOSAMINE) [Concomitant]
  11. CHONDROITIN (CHONDROITIN) [Concomitant]
  12. MORPHINE SULFATE [Concomitant]

REACTIONS (2)
  - ABDOMINAL PAIN [None]
  - NAUSEA [None]
